FAERS Safety Report 4333174-1 (Version None)
Quarter: 2004Q1

REPORT INFORMATION
  Report Type: 
  Country: None (occurrence: None)
  Receive Date: 20040330
  Receipt Date: 20040316
  Transmission Date: 20041129
  Serious: No
  Sender: FDA-Public Use
  Company Number: 2004UW05280

PATIENT
  Age: 59 Year
  Sex: Female
  Weight: 79.3795 kg

DRUGS (5)
  1. CRESTOR [Suspect]
     Indication: BLOOD CHOLESTEROL INCREASED
     Dosage: 10 MG DAILY PO
     Route: 048
  2. ATENOLOL [Concomitant]
  3. ASPIRIN [Concomitant]
  4. CALCIUM [Concomitant]
  5. VITAMIN D [Concomitant]

REACTIONS (7)
  - ASTHENIA [None]
  - DEPRESSION [None]
  - FATIGUE [None]
  - NASOPHARYNGEAL DISORDER [None]
  - SENSATION OF HEAVINESS [None]
  - SPEECH DISORDER [None]
  - SUICIDAL IDEATION [None]
